FAERS Safety Report 4939653-8 (Version None)
Quarter: 2006Q1

REPORT INFORMATION
  Report Type: 
  Country: None (occurrence: None)
  Receive Date: 20060307
  Receipt Date: 20060222
  Transmission Date: 20060701
  Serious: Yes (Hospitalization)
  Sender: FDA-Public Use
  Company Number: 2006029773

PATIENT
  Age: 72 Year
  Sex: Male

DRUGS (1)
  1. ATARAX [Suspect]
     Indication: SEDATION
     Dosage: 200 MG (DAILY), ORAL
     Route: 048
     Dates: start: 20050120, end: 20050131

REACTIONS (28)
  - ASPIRATION [None]
  - ASTHENIA [None]
  - CYTOMEGALOVIRUS INFECTION [None]
  - DIALYSIS [None]
  - DRUG RASH WITH EOSINOPHILIA AND SYSTEMIC SYMPTOMS [None]
  - DYSPHONIA [None]
  - ESCHAR [None]
  - FATIGUE [None]
  - GENERAL PHYSICAL HEALTH DETERIORATION [None]
  - HISTIOCYTOSIS HAEMATOPHAGIC [None]
  - LEUKOPENIA [None]
  - LUNG DISORDER [None]
  - MALNUTRITION [None]
  - MENTAL DISORDER [None]
  - MULTI-ORGAN FAILURE [None]
  - NECROSIS [None]
  - NEUROMYOPATHY [None]
  - NEUTROPENIA [None]
  - NODULE [None]
  - OLIGURIA [None]
  - OSTEITIS [None]
  - PAIN [None]
  - PURPURA [None]
  - RENAL FAILURE ACUTE [None]
  - SEPTIC SHOCK [None]
  - SKIN LESION [None]
  - THROMBOCYTOPENIA [None]
  - VASCULITIS [None]
